FAERS Safety Report 11230325 (Version 1)
Quarter: 2015Q3

REPORT INFORMATION
  Report Type: Spontaneous
  Country: IT (occurrence: IT)
  Receive Date: 20150701
  Receipt Date: 20150701
  Transmission Date: 20151125
  Serious: Yes (Hospitalization, Other)
  Sender: FDA-Public Use
  Company Number: IT-TAKEDA-2015MPI001438

PATIENT

DRUGS (19)
  1. RAMIPRIL. [Concomitant]
     Active Substance: RAMIPRIL
     Dosage: UNK
     Route: 065
  2. ZOMETA [Concomitant]
     Active Substance: ZOLEDRONIC ACID
     Route: 065
  3. AMLODIPINE BESILATE [Concomitant]
     Active Substance: AMLODIPINE BESYLATE
     Dosage: DOSAGE FORM: UNSPECIFIED
  4. SOLDESAM [Concomitant]
     Active Substance: DEXAMETHASONE
     Route: 065
  5. VELCADE [Suspect]
     Active Substance: BORTEZOMIB
     Indication: PLASMA CELL MYELOMA
     Dosage: 2.55 MG, UNK
     Route: 041
     Dates: start: 20141001, end: 20141229
  6. RAMIPRIL. [Concomitant]
     Active Substance: RAMIPRIL
     Dosage: DOSAGE FORM: UNSPECIFIED
  7. DEXAMETHASONE. [Concomitant]
     Active Substance: DEXAMETHASONE
     Dosage: DOSAGE FORM: UNSPECIFIED
  8. AMLODIPINE BESILATE [Concomitant]
     Active Substance: AMLODIPINE BESYLATE
     Dosage: UNK
     Route: 065
  9. CARDIOASPIRIN [Concomitant]
     Active Substance: ASPIRIN
     Route: 065
  10. CARDIOASPIRIN [Concomitant]
     Active Substance: ASPIRIN
     Route: 065
  11. BISOPROLOL HEMIFUMARATE [Concomitant]
     Active Substance: BISOPROLOL FUMARATE
     Dosage: UNK
     Route: 065
  12. OMEPRAZOLE. [Concomitant]
     Active Substance: OMEPRAZOLE
     Dosage: DOSAGE FORM: UNSPECIFIED
  13. SOLDESAM [Concomitant]
     Active Substance: DEXAMETHASONE
     Route: 065
  14. GRANULOKINE [Concomitant]
     Active Substance: FILGRASTIM
     Route: 065
  15. OMEPRAZOLE. [Concomitant]
     Active Substance: OMEPRAZOLE
     Dosage: UNK
     Route: 065
  16. DEXAMETHASONE. [Concomitant]
     Active Substance: DEXAMETHASONE
     Dosage: UNK
     Route: 065
  17. BISOPROLOL HEMIFUMARATE [Concomitant]
     Active Substance: BISOPROLOL FUMARATE
     Dosage: DOSAGE FORM: UNSPECIFIED
  18. ZOMETA [Concomitant]
     Active Substance: ZOLEDRONIC ACID
     Route: 065
  19. GRANULOKINE [Concomitant]
     Active Substance: FILGRASTIM
     Route: 065

REACTIONS (3)
  - Septic shock [Recovering/Resolving]
  - Acute kidney injury [Recovering/Resolving]
  - Thrombocytopenia [Recovering/Resolving]

NARRATIVE: CASE EVENT DATE: 20150205
